FAERS Safety Report 5589503-4 (Version None)
Quarter: 2008Q1

REPORT INFORMATION
  Report Type: 
  Country: None (occurrence: None)
  Receive Date: 20080109
  Receipt Date: 20080102
  Transmission Date: 20080703
  Serious: Yes (Other)
  Sender: FDA-Public Use
  Company Number: GXKR2007FR10683

PATIENT
  Sex: 0

DRUGS (5)
  1. CLARITHROMYCIN [Suspect]
  2. CARBAMAZEPINE [Suspect]
  3. METRONIDAZOLE [Concomitant]
  4. OMEPRAZOLE [Concomitant]
  5. TOPIRAMATE [Concomitant]

REACTIONS (6)
  - ANTICONVULSANT DRUG LEVEL ABOVE THERAPEUTIC [None]
  - DRUG INTERACTION [None]
  - DYSARTHRIA [None]
  - EYE MOVEMENT DISORDER [None]
  - HYPONATRAEMIA [None]
  - NYSTAGMUS [None]
